FAERS Safety Report 16746557 (Version 1)
Quarter: 2019Q3

REPORT INFORMATION
  Report Type: Report from Study
  Country: None (occurrence: US)
  Receive Date: 20190827
  Receipt Date: 20190827
  Transmission Date: 20191005
  Serious: Yes (Other)
  Sender: FDA-Public Use
  Company Number: US-ABBVIE-19K-163-2815503-00

PATIENT
  Age: 68 Year
  Sex: Female

DRUGS (6)
  1. HUMIRA [Suspect]
     Active Substance: ADALIMUMAB
     Route: 058
     Dates: start: 20190615
  2. PLAQUENIL [Concomitant]
     Active Substance: HYDROXYCHLOROQUINE SULFATE
     Indication: RHEUMATOID ARTHRITIS
  3. LODINE [Concomitant]
     Active Substance: ETODOLAC
     Indication: RHEUMATOID ARTHRITIS
  4. HUMIRA [Suspect]
     Active Substance: ADALIMUMAB
     Indication: RHEUMATOID ARTHRITIS
     Route: 058
     Dates: start: 2007, end: 201904
  5. LIPITOR [Concomitant]
     Active Substance: ATORVASTATIN CALCIUM
     Indication: RHEUMATOID ARTHRITIS
  6. METHOTREXATE. [Concomitant]
     Active Substance: METHOTREXATE
     Indication: RHEUMATOID ARTHRITIS

REACTIONS (8)
  - Cataract [Unknown]
  - Device related infection [Unknown]
  - Arthralgia [Unknown]
  - Pain in extremity [Unknown]
  - Artificial crown procedure [Unknown]
  - Hypersensitivity [Unknown]
  - Device breakage [Unknown]
  - Joint swelling [Unknown]

NARRATIVE: CASE EVENT DATE: 201811
